FAERS Safety Report 23651419 (Version 3)
Quarter: 2024Q3

REPORT INFORMATION
  Report Type: Report from Study
  Country: EG (occurrence: EG)
  Receive Date: 20240320
  Receipt Date: 20240927
  Transmission Date: 20241016
  Serious: Yes (Other)
  Sender: NOVARTIS
  Company Number: EG-002147023-NVSC2024EG057794

PATIENT
  Age: 40 Year
  Sex: Female

DRUGS (8)
  1. KISQALI [Suspect]
     Active Substance: RIBOCICLIB
     Indication: Breast cancer metastatic
     Dosage: 600 MG, QD (3 TABLETS ONCE DAILY FOR 21 DAYS AND ONE WEEK OFF)
     Route: 048
     Dates: start: 202006
  2. KISQALI [Suspect]
     Active Substance: RIBOCICLIB
     Indication: Metastases to lung
     Dosage: 200 MG (3 TABLETS ONCE PER DAY FOR 21 DAYS AND 1 WEEK OFF (FOR 6 MONTHS AS PER THE UPLOADED PRESCRIP
     Route: 065
     Dates: start: 20200627
  3. FEMARA [Suspect]
     Active Substance: LETROZOLE
     Indication: Breast cancer
     Dosage: 2.5 MG, QD (1 TABLET ONCE DAILY)
     Route: 048
     Dates: start: 202001
  4. FEMARA [Suspect]
     Active Substance: LETROZOLE
     Indication: Breast cancer metastatic
     Dosage: 1 TABLET (FOR 6 MONTHS AS PER THE UPLOADED PRESCRIPTION) (2 MONTHS BEFORE METASTASIS AS PER PATIENT?
     Route: 048
     Dates: start: 202004
  5. ZOMETA [Suspect]
     Active Substance: ZOLEDRONIC ACID
     Indication: Osteoporosis
     Dosage: 1 DOSAGE FORM (ONE IV INFUSION EVERY 6 MONTHS)
     Route: 042
     Dates: start: 202301
  6. ZOMETA [Suspect]
     Active Substance: ZOLEDRONIC ACID
     Indication: Blood calcium decreased
  7. ZOMETA [Suspect]
     Active Substance: ZOLEDRONIC ACID
     Indication: Pain in extremity
  8. GOSERELIN [Concomitant]
     Active Substance: GOSERELIN
     Indication: Breast cancer
     Dosage: 10.8 MG, OTHER (ONE INJECTION EVERY 3 MONTHS)
     Route: 058
     Dates: start: 202001

REACTIONS (8)
  - Osteoporosis [Recovering/Resolving]
  - Blood calcium decreased [Recovering/Resolving]
  - Bone pain [Recovering/Resolving]
  - Pain in extremity [Recovering/Resolving]
  - Metastases to lung [Recovered/Resolved]
  - Vitiligo [Not Recovered/Not Resolved]
  - Drug ineffective [Unknown]
  - Inappropriate schedule of product administration [Unknown]

NARRATIVE: CASE EVENT DATE: 20231001
